FAERS Safety Report 17845206 (Version 1)
Quarter: 2020Q2

REPORT INFORMATION
  Report Type: Spontaneous
  Country: FR (occurrence: FR)
  Receive Date: 20200601
  Receipt Date: 20200601
  Transmission Date: 20200714
  Serious: Yes (Other)
  Sender: FDA-Public Use
  Company Number: FR-ROCHE-2608850

PATIENT
  Age: 92 Year
  Sex: Female
  Weight: 67.8 kg

DRUGS (13)
  1. CALCIPARINE [Suspect]
     Active Substance: HEPARIN CALCIUM
     Indication: PRODUCT USED FOR UNKNOWN INDICATION
     Route: 058
     Dates: start: 20200327, end: 20200401
  2. SCOPODERM [HYOSCINE] [Suspect]
     Active Substance: SCOPOLAMINE
     Indication: SEDATION
     Route: 042
     Dates: start: 20200331
  3. PANTOPRAZOLE [Concomitant]
     Active Substance: PANTOPRAZOLE
  4. RIVOTRIL [Suspect]
     Active Substance: CLONAZEPAM
     Indication: SEDATION
     Route: 042
     Dates: start: 20200330
  5. PREDNISONE. [Concomitant]
     Active Substance: PREDNISONE
  6. ENOXAPARINE SODIQUE [Concomitant]
     Active Substance: ENOXAPARIN SODIUM
  7. PARACETAMOL [Suspect]
     Active Substance: ACETAMINOPHEN
     Indication: ANALGESIC THERAPY
     Route: 042
     Dates: start: 20200329, end: 20200401
  8. AZITHROMYCINE [Concomitant]
     Active Substance: AZITHROMYCIN
  9. BUDESONIDE. [Concomitant]
     Active Substance: BUDESONIDE
  10. SALBUTAMOL [Concomitant]
     Active Substance: ALBUTEROL
  11. MORPHINE RENAUDIN [Suspect]
     Active Substance: MORPHINE
     Indication: SEDATION
     Route: 042
     Dates: start: 20200330
  12. KARDEGIC [Concomitant]
     Active Substance: ASPIRIN DL-LYSINE
  13. CEFOTAXIME [Suspect]
     Active Substance: CEFOTAXIME SODIUM
     Indication: BRONCHITIS
     Route: 042
     Dates: start: 20200327, end: 20200402

REACTIONS (1)
  - Urinary retention [Recovering/Resolving]

NARRATIVE: CASE EVENT DATE: 20200402
